FAERS Safety Report 5489294-1 (Version None)
Quarter: 2007Q4

REPORT INFORMATION
  Report Type: 
  Country: None (occurrence: None)
  Receive Date: 20071005
  Receipt Date: 20070806
  Transmission Date: 20080405
  Serious: No
  Sender: FDA-Public Use
  Company Number: PHEH2007US09411

PATIENT
  Age: 77 Year
  Sex: Female
  Weight: 85.3 kg

DRUGS (10)
  1. TEKTURNA [Suspect]
     Indication: HYPERTENSION
     Dosage: 150 MG, ONCE/SINGLE, ORAL
     Route: 048
     Dates: start: 20070522, end: 20070522
  2. ENALAPRIL MALEATE [Concomitant]
  3. KLOR-CON [Concomitant]
  4. ACETYLSALICYLIC ACID SRT [Concomitant]
  5. TOPROL-XL [Concomitant]
  6. LASIX [Concomitant]
  7. BENICAR [Concomitant]
  8. PAXIL [Concomitant]
  9. CLONIDINE [Concomitant]
  10. CRESTOR [Concomitant]

REACTIONS (4)
  - DIARRHOEA [None]
  - MALAISE [None]
  - NAUSEA [None]
  - VOMITING [None]
